FAERS Safety Report 7841832-7 (Version None)
Quarter: 2011Q4

REPORT INFORMATION
  Report Type: 
  Country: None (occurrence: None)
  Receive Date: 20111024
  Receipt Date: 20111024
  Transmission Date: 20120403
  Serious: Yes (Life-Threatening, Hospitalization)
  Sender: FDA-Public Use
  Company Number: None

PATIENT
  Sex: Female
  Weight: 72.5755 kg

DRUGS (2)
  1. BONIVA [Suspect]
     Indication: BLOOD CALCIUM
     Dosage: BONIVA 1 QMO.
     Dates: start: 20110901
  2. BONIVA [Suspect]
     Indication: BLOOD CALCIUM
     Dosage: BONIVA 1 QMO.
     Dates: start: 20110801

REACTIONS (2)
  - ODYNOPHAGIA [None]
  - OESOPHAGEAL DISORDER [None]
